FAERS Safety Report 4525652-7 (Version None)
Quarter: 2004Q4

REPORT INFORMATION
  Report Type: 
  Country: None (occurrence: None)
  Receive Date: 20041210
  Receipt Date: 20041129
  Transmission Date: 20050328
  Serious: Yes (Other)
  Sender: FDA-Public Use
  Company Number: GXKR2004GB00456

PATIENT
  Age: 66 Year
  Sex: Male
  Weight: 108 kg

DRUGS (6)
  1. METRONIDAZOLE [Suspect]
  2. LANTUS [Suspect]
     Dosage: 40 UNITS, SUBCUTANEOUS
     Route: 058
  3. LOSARTAN (LOSARTAN) [Concomitant]
  4. METFORMIN (METFORMIN) [Concomitant]
  5. CO-PROXAMOL (DEXTROPROPOXYPHENE HYDROCHLORIDE, PARACETAMOL) [Concomitant]
  6. PIROXICAM [Concomitant]

REACTIONS (2)
  - DRUG INTERACTION [None]
  - HYPOGLYCAEMIA [None]
